FAERS Safety Report 5797348-5 (Version None)
Quarter: 2008Q2

REPORT INFORMATION
  Report Type: 
  Country: None (occurrence: None)
  Receive Date: 20080630
  Receipt Date: 20080624
  Transmission Date: 20081010
  Serious: Yes (Other)
  Sender: FDA-Public Use
  Company Number: CHPA2008US10549

PATIENT
  Age: 62 Year
  Sex: Female

DRUGS (4)
  1. FERROUS SULFATE TAB [Suspect]
     Indication: MINERAL SUPPLEMENTATION
     Dosage: 160 MG, QD, ORAL
     Route: 048
     Dates: start: 20030101
  2. AMARYL [Concomitant]
  3. CLONIDINE [Concomitant]
  4. PREVACID [Concomitant]

REACTIONS (1)
  - LIVER DISORDER [None]
